FAERS Safety Report 5850101-6 (Version None)
Quarter: 2008Q3

REPORT INFORMATION
  Report Type: 
  Country: None (occurrence: None)
  Receive Date: 20080819
  Receipt Date: 20080818
  Transmission Date: 20090109
  Serious: Yes (Other)
  Sender: FDA-Public Use
  Company Number: US-BOEHRINGER INGELHEIM GMBH, GERMANY-2008-BP-12957RO

PATIENT
  Age: 86 Year
  Sex: Female

DRUGS (3)
  1. CYCLOPHOSPHAMIDE [Suspect]
     Indication: BREAST CANCER METASTATIC
     Dates: start: 20071026, end: 20080201
  2. METHOTREXATE [Suspect]
     Indication: BREAST CANCER METASTATIC
     Dates: start: 20071026, end: 20080201
  3. SUNITINIB MALATE [Suspect]
     Indication: BREAST CANCER METASTATIC
     Dates: start: 20071026, end: 20080201

REACTIONS (5)
  - CEREBRAL INFARCTION [None]
  - CEREBRAL ISCHAEMIA [None]
  - FALL [None]
  - METASTASES TO MENINGES [None]
  - SUBDURAL HAEMATOMA [None]
